FAERS Safety Report 7813157-7 (Version None)
Quarter: 2011Q4

REPORT INFORMATION
  Report Type: 
  Country: None (occurrence: None)
  Receive Date: 20111013
  Receipt Date: 20111005
  Transmission Date: 20120403
  Serious: Yes (Hospitalization, Other)
  Sender: FDA-Public Use
  Company Number: US-ASTRAZENECA-2011SE59911

PATIENT
  Age: 65 Year
  Sex: Female

DRUGS (2)
  1. CIPROFLOXACIN [Concomitant]
  2. NEXIUM [Suspect]
     Route: 048

REACTIONS (4)
  - URINARY TRACT INFECTION [None]
  - SYNCOPE [None]
  - UPPER LIMB FRACTURE [None]
  - MYOCARDIAL INFARCTION [None]
